FAERS Safety Report 7746220-X (Version None)
Quarter: 2011Q3

REPORT INFORMATION
  Report Type: 
  Country: None (occurrence: None)
  Receive Date: 20110913
  Receipt Date: 20110823
  Transmission Date: 20111222
  Serious: No
  Sender: FDA-Public Use
  Company Number: US-JNJFOC-20110901226

PATIENT
  Sex: Female
  Weight: 72.58 kg

DRUGS (3)
  1. OXYCODONE HCL [Concomitant]
     Indication: PAIN
     Dosage: 10/325MG AS NEEDED
     Route: 048
  2. SANDOZ FENTANYL TRANSDERMAL SYSTEM [Suspect]
     Indication: FIBROMYALGIA
     Dosage: EVERY 48-72 HRS
     Route: 062
     Dates: start: 20110601
  3. TOPAMAX [Concomitant]
     Indication: PAIN
     Route: 048

REACTIONS (2)
  - PRODUCT ADHESION ISSUE [None]
  - WRONG TECHNIQUE IN DRUG USAGE PROCESS [None]
